FAERS Safety Report 6698352-5 (Version None)
Quarter: 2010Q2

REPORT INFORMATION
  Report Type: 
  Country: None (occurrence: None)
  Receive Date: 20100427
  Receipt Date: 20100422
  Transmission Date: 20101027
  Serious: Yes (Death)
  Sender: FDA-Public Use
  Company Number: SK-CELGENEUS-260-21880-09120374

PATIENT
  Age: 81 Year
  Sex: Female

DRUGS (4)
  1. REVLIMID [Suspect]
     Indication: MULTIPLE MYELOMA
     Route: 048
     Dates: start: 20090401
  2. REVLIMID [Suspect]
     Route: 048
     Dates: start: 20090901, end: 20090901
  3. ENDOXAN [Concomitant]
     Indication: MULTIPLE MYELOMA
     Route: 065
  4. PREDNISONE TAB [Concomitant]
     Indication: MULTIPLE MYELOMA
     Route: 065

REACTIONS (2)
  - HYPERCALCAEMIA [None]
  - MULTIPLE MYELOMA [None]
